APPROVED DRUG PRODUCT: INDOMETHACIN
Active Ingredient: INDOMETHACIN
Strength: 75MG
Dosage Form/Route: CAPSULE, EXTENDED RELEASE;ORAL
Application: A202706 | Product #001
Applicant: JUBILANT GENERICS LTD
Approved: Oct 5, 2015 | RLD: No | RS: No | Type: DISCN